FAERS Safety Report 9740540 (Version 1)
Quarter: 2013Q4

REPORT INFORMATION
  Report Type: Spontaneous
  Country: US (occurrence: US)
  Receive Date: 20131209
  Receipt Date: 20131209
  Transmission Date: 20140711
  Serious: No
  Sender: FDA-Public Use
  Company Number: US-BIOGENIDEC-2013BI096960

PATIENT
  Age: 46 Year
  Sex: Female

DRUGS (1)
  1. TECFIDERA [Suspect]
     Indication: MULTIPLE SCLEROSIS
     Route: 048
     Dates: start: 201308

REACTIONS (9)
  - Headache [Unknown]
  - Hypoaesthesia [Unknown]
  - Paraesthesia [Unknown]
  - Cough [Unknown]
  - Respiratory tract congestion [Unknown]
  - Nasal congestion [Unknown]
  - Sinus headache [Unknown]
  - White blood cell count decreased [Unknown]
  - Nausea [Unknown]
